FAERS Safety Report 6138425-9 (Version None)
Quarter: 2009Q1

REPORT INFORMATION
  Report Type: 
  Country: None (occurrence: None)
  Receive Date: 20090331
  Receipt Date: 20090318
  Transmission Date: 20090719
  Serious: Yes (Hospitalization, Other)
  Sender: FDA-Public Use
  Company Number: TR-ELI_LILLY_AND_COMPANY-TR200903007181

PATIENT
  Age: 82 Year
  Sex: Female

DRUGS (2)
  1. HUMULIN 70/30 [Suspect]
     Indication: DIABETES MELLITUS
     Dosage: 50 IU, EACH MORNING
     Route: 058
  2. HUMULIN 70/30 [Suspect]
     Dosage: 35 IU, EACH EVENING
     Route: 058

REACTIONS (2)
  - PNEUMONIA [None]
  - RENAL FAILURE [None]
